FAERS Safety Report 8818299 (Version 1)
Quarter: 2012Q4

REPORT INFORMATION
  Report Type: 
  Country: US (occurrence: US)
  Receive Date: 20121001
  Receipt Date: 20121001
  Transmission Date: 20130627
  Serious: Yes (Death, Hospitalization)
  Sender: FDA-Public Use
  Company Number: US-VIROPHARMA INCORPORATED-20120918CINRY3412

PATIENT
  Age: 57 Year
  Sex: Female

DRUGS (1)
  1. CINRYZE (C1 ESTERASE INHIBITOR (HUMAN)) [Suspect]
     Indication: HEREDITARY ANGIOEDEMA
     Dosage: unknown
     Route: 065

REACTIONS (6)
  - Hypotension [Fatal]
  - Lactic acidosis [Fatal]
  - Haemodynamic instability [Fatal]
  - Cardiac disorder [Fatal]
  - Abdominal pain [Fatal]
  - Renal failure acute [Fatal]
